FAERS Safety Report 5261038-8 (Version None)
Quarter: 2007Q1

REPORT INFORMATION
  Report Type: 
  Country: None (occurrence: None)
  Receive Date: 20070309
  Receipt Date: 20070223
  Transmission Date: 20070707
  Serious: Yes (Death, Hospitalization, Other)
  Sender: FDA-Public Use
  Company Number: US-AMGEN-US213824

PATIENT
  Age: 71 Year
  Sex: Male

DRUGS (6)
  1. NEULASTA [Suspect]
     Indication: NEUTROPENIA
     Route: 058
  2. RED BLOOD CELLS [Concomitant]
     Route: 065
     Dates: start: 20030101
  3. PLATELETS [Concomitant]
     Route: 065
     Dates: start: 20030101
  4. IMMUNOGLOBULINS [Concomitant]
     Route: 042
     Dates: start: 20030101
  5. EPOGEN [Concomitant]
     Route: 065
     Dates: start: 20030101
  6. FILGRASTIM [Concomitant]
     Route: 065
     Dates: start: 20030101

REACTIONS (7)
  - ASPERGILLOSIS [None]
  - EXTRAMEDULLARY HAEMOPOIESIS [None]
  - HISTIOCYTOSIS HAEMATOPHAGIC [None]
  - MYELOBLAST COUNT INCREASED [None]
  - NEUTROPENIA [None]
  - PYREXIA [None]
  - REFRACTORY ANAEMIA WITH AN EXCESS OF BLASTS [None]
